FAERS Safety Report 14366874 (Version 9)
Quarter: 2018Q4

REPORT INFORMATION
  Report Type: Report from Study
  Country: US (occurrence: US)
  Receive Date: 20180109
  Receipt Date: 20181018
  Transmission Date: 20190204
  Serious: Yes (Hospitalization, Other)
  Sender: FDA-Public Use
  Company Number: US-GILEAD-2017-0300874

PATIENT
  Age: 36 Year
  Sex: Female

DRUGS (4)
  1. AMBRISENTAN [Suspect]
     Active Substance: AMBRISENTAN
     Indication: PULMONARY HYPERTENSION
     Dosage: 10 MG, QD
     Route: 065
     Dates: start: 20170404
  2. UPTRAVI [Suspect]
     Active Substance: SELEXIPAG
     Dosage: UNK
     Route: 065
  3. UPTRAVI [Suspect]
     Active Substance: SELEXIPAG
     Indication: PRODUCT USED FOR UNKNOWN INDICATION
     Dosage: 800 UG, UNK
     Route: 065
  4. ADCIRCA [Suspect]
     Active Substance: TADALAFIL
     Indication: PULMONARY HYPERTENSION
     Dosage: 40 MG, QD
     Route: 065
     Dates: start: 20180116

REACTIONS (30)
  - Hypersensitivity [Unknown]
  - Hypotension [Unknown]
  - Blood potassium abnormal [Unknown]
  - Intentional product use issue [Not Recovered/Not Resolved]
  - Blood potassium decreased [Unknown]
  - Mental disorder [Not Recovered/Not Resolved]
  - Swelling [Unknown]
  - Fatigue [Not Recovered/Not Resolved]
  - Pain [Unknown]
  - Nausea [Not Recovered/Not Resolved]
  - Dizziness [Unknown]
  - Heart rate increased [Unknown]
  - Dermatitis contact [Unknown]
  - Malaise [Unknown]
  - Headache [Not Recovered/Not Resolved]
  - Amnesia [Unknown]
  - Nausea [Unknown]
  - Pleurisy [Not Recovered/Not Resolved]
  - Depression [Not Recovered/Not Resolved]
  - Pneumonia [Not Recovered/Not Resolved]
  - Dementia [Unknown]
  - Insomnia [Unknown]
  - Fear [Unknown]
  - Pulmonary pain [Unknown]
  - Dyspnoea [Unknown]
  - Weight fluctuation [Not Recovered/Not Resolved]
  - Heart rate increased [Unknown]
  - Chest pain [Unknown]
  - Pain in jaw [Not Recovered/Not Resolved]
  - Flushing [Unknown]

NARRATIVE: CASE EVENT DATE: 20180103
